FAERS Safety Report 5316947-8 (Version None)
Quarter: 2007Q2

REPORT INFORMATION
  Report Type: 
  Country: None (occurrence: None)
  Receive Date: 20070501
  Receipt Date: 20070501
  Transmission Date: 20071010
  Serious: Yes (Hospitalization)
  Sender: FDA-Public Use
  Company Number: None

PATIENT
  Age: 82 Year
  Sex: Male
  Weight: 60.782 kg

DRUGS (9)
  1. TERAZOSIN HCL [Suspect]
     Indication: BENIGN PROSTATIC HYPERPLASIA
     Dosage: 1 MG  QHS   PO
     Route: 048
     Dates: start: 20070110, end: 20070408
  2. FINASTERIDE [Concomitant]
  3. M.V.I. [Concomitant]
  4. MEMANTINE HCL [Concomitant]
  5. CYANOCOBALAMIN [Concomitant]
  6. QUETIAPINE FUMARATE [Concomitant]
  7. BENAZEPRIL HYDROCHLORIDE [Concomitant]
  8. GALANTAMINE HYDROBROMIDE [Concomitant]
  9. MIRTAZAPINE [Concomitant]

REACTIONS (2)
  - ATRIAL FIBRILLATION [None]
  - BRADYCARDIA [None]
